FAERS Safety Report 25736058 (Version 2)
Quarter: 2025Q3

REPORT INFORMATION
  Report Type: Spontaneous
  Country: JP (occurrence: JP)
  Receive Date: 20250828
  Receipt Date: 20250922
  Transmission Date: 20251020
  Serious: Yes (Death, Other)
  Sender: PURDUE
  Company Number: JP-NAPPMUNDI-GBR-2025-0128387

PATIENT
  Age: 73 Year
  Sex: Male

DRUGS (1)
  1. NORSPAN [Suspect]
     Active Substance: BUPRENORPHINE
     Indication: Cancer pain
     Dosage: 5 MILLIGRAM, WEEKLY

REACTIONS (3)
  - Altered state of consciousness [Fatal]
  - Malignant neoplasm progression [Fatal]
  - Off label use [Unknown]
